FAERS Safety Report 4513301-3 (Version None)
Quarter: 2004Q4

REPORT INFORMATION
  Report Type: 
  Country: None (occurrence: None)
  Receive Date: 20041130
  Receipt Date: 20040413
  Transmission Date: 20050328
  Serious: Yes (Other)
  Sender: FDA-Public Use
  Company Number: US-BRISTOL-MYERS SQUIBB COMPANY-12559258

PATIENT
  Age: 62 Year
  Sex: Male
  Weight: 99 kg

DRUGS (14)
  1. ERBITUX [Suspect]
     Indication: COLON CANCER METASTATIC
     Route: 042
     Dates: start: 20040406, end: 20040406
  2. SOLU-MEDROL [Concomitant]
     Indication: PREMEDICATION
     Dates: start: 20040406, end: 20040406
  3. TAGAMET [Concomitant]
     Indication: PREMEDICATION
     Dates: start: 20040406, end: 20040406
  4. TYLENOL (CAPLET) [Concomitant]
     Indication: PREMEDICATION
     Dates: start: 20040406, end: 20040406
  5. ZANTAC [Concomitant]
     Indication: PREMEDICATION
     Dates: start: 20040406, end: 20040406
  6. ZYRTEC [Concomitant]
     Indication: PREMEDICATION
     Dates: start: 20040406, end: 20040406
  7. ATIVAN [Concomitant]
  8. IMODIUM [Concomitant]
  9. COUMADIN [Concomitant]
  10. ROXICET [Concomitant]
     Indication: PAIN
  11. DILTIAZEM HCL [Concomitant]
  12. PRILOSEC [Concomitant]
  13. TRIAMTERENE AND HYDROCHLOROTHIAZIDE [Concomitant]
  14. TEGRETOL [Concomitant]

REACTIONS (6)
  - INFUSION RELATED REACTION [None]
  - RASH PRURITIC [None]
  - RASH PUSTULAR [None]
  - RESPIRATORY DISTRESS [None]
  - URTICARIA [None]
  - WHEEZING [None]
